FAERS Safety Report 8059777-9 (Version None)
Quarter: 2012Q1

REPORT INFORMATION
  Report Type: 
  Country: None (occurrence: None)
  Receive Date: 20120120
  Receipt Date: 20120118
  Transmission Date: 20120608
  Serious: Yes (Death)
  Sender: FDA-Public Use
  Company Number: PHEH2012US001391

PATIENT
  Sex: Male
  Weight: 72.562 kg

DRUGS (8)
  1. TASIGNA [Suspect]
     Indication: CHRONIC MYELOID LEUKAEMIA
     Dosage: 300 MG, BID
     Route: 048
     Dates: start: 20101001
  2. SYMBICORT [Concomitant]
  3. PRILOSEC [Concomitant]
  4. PLAVIX [Concomitant]
  5. ACETAMINOPHEN [Concomitant]
  6. HYDROXYUREA [Concomitant]
  7. ALBUTEROL [Concomitant]
  8. ASPIRIN [Concomitant]

REACTIONS (12)
  - BLOOD PRESSURE DIASTOLIC DECREASED [None]
  - BLOOD CHOLESTEROL INCREASED [None]
  - BACK PAIN [None]
  - SKIN HYPERPIGMENTATION [None]
  - DEATH [None]
  - FATIGUE [None]
  - BLOOD GLUCOSE INCREASED [None]
  - HAEMOGLOBIN DECREASED [None]
  - BLOOD UREA INCREASED [None]
  - BLOOD CREATININE INCREASED [None]
  - GLOBULINS INCREASED [None]
  - BLOOD SODIUM DECREASED [None]
